FAERS Safety Report 10285930 (Version 1)
Quarter: 2014Q3

REPORT INFORMATION
  Report Type: Spontaneous
  Country: US (occurrence: None)
  Receive Date: 20140703
  Receipt Date: 20140703
  Transmission Date: 20150326
  Serious: Yes (Death, Hospitalization)
  Sender: FDA-Public Use
  Company Number: SYM-2014-22609

PATIENT
  Age: 71 Year
  Sex: Female

DRUGS (6)
  1. PROZAC [Concomitant]
     Active Substance: FLUOXETINE HYDROCHLORIDE
  2. OXYBUTYNIN (OXYBUTYNIN) [Concomitant]
     Active Substance: OXYBUTYNIN
  3. XENAZINE [Suspect]
     Active Substance: TETRABENAZINE
     Indication: HUNTINGTON^S DISEASE
     Route: 048
     Dates: end: 20140624
  4. LISINOPRIL (LISINOPRIL) [Concomitant]
     Active Substance: LISINOPRIL
  5. RISPERIDONE (RISPERIDONE) [Concomitant]
     Active Substance: RISPERIDONE
  6. SIMVASTATIN (SIMVASTATIN) [Concomitant]
     Active Substance: SIMVASTATIN

REACTIONS (2)
  - Staphylococcal infection [None]
  - Pneumonia [None]

NARRATIVE: CASE EVENT DATE: 20140616
